FAERS Safety Report 6129547-7 (Version None)
Quarter: 2009Q1

REPORT INFORMATION
  Report Type: 
  Country: None (occurrence: None)
  Receive Date: 20090324
  Receipt Date: 20090317
  Transmission Date: 20090719
  Serious: Yes (Other)
  Sender: FDA-Public Use
  Company Number: US-ASTRAZENECA-2009UW06911

PATIENT
  Sex: Male

DRUGS (1)
  1. SEROQUEL [Suspect]
     Dosage: TAPERED UP OVER I WEEK TO 300 MG
     Route: 048
     Dates: start: 20090101, end: 20090311

REACTIONS (4)
  - HYPERSOMNIA [None]
  - HYPOAESTHESIA [None]
  - NASAL CONGESTION [None]
  - ULNAR NERVE PALSY [None]
